FAERS Safety Report 9786427 (Version 1)
Quarter: 2013Q4

REPORT INFORMATION
  Report Type: Spontaneous
  Country: US (occurrence: None)
  Receive Date: 20131223
  Receipt Date: 20131223
  Transmission Date: 20140711
  Serious: Yes (Other)
  Sender: FDA-Public Use
  Company Number: EUS-2012-00951

PATIENT
  Age: 16 Year
  Sex: Male

DRUGS (4)
  1. ASPARAGINASE [Suspect]
     Indication: ACUTE LYMPHOCYTIC LEUKAEMIA
  2. VINCRISTINE (VINCRISTINE) [Concomitant]
  3. DAUNORUBICINE [Concomitant]
  4. CORTICOSTEROIDS [Concomitant]

REACTIONS (1)
  - Cerebral venous thrombosis [None]
